FAERS Safety Report 9169383 (Version 2)
Quarter: 2013Q2

REPORT INFORMATION
  Report Type: Spontaneous
  Country: NO (occurrence: NO)
  Receive Date: 20130318
  Receipt Date: 20130517
  Transmission Date: 20140414
  Serious: Yes (Other)
  Sender: FDA-Public Use
  Company Number: NO-PFIZER INC-2012167929

PATIENT
  Age: 68 Year
  Sex: Female

DRUGS (3)
  1. FLUOROURACIL [Suspect]
     Dosage: UNK
     Route: 042
     Dates: start: 20120614, end: 20120614
  2. OXALIPLATIN [Suspect]
     Dosage: UNK
     Route: 042
     Dates: start: 20120614, end: 20120614
  3. LEUCOVORIN [Concomitant]
     Indication: PRODUCT USED FOR UNKNOWN INDICATION

REACTIONS (4)
  - Monoplegia [Unknown]
  - Blood pressure increased [Unknown]
  - Dyspnoea [Unknown]
  - Dysarthria [Unknown]
